FAERS Safety Report 14517586 (Version 4)
Quarter: 2023Q2

REPORT INFORMATION
  Report Type: Spontaneous
  Country: US (occurrence: None)
  Receive Date: 20180212
  Receipt Date: 20230503
  Transmission Date: 20230722
  Serious: Yes (Other)
  Sender: FDA-Public Use
  Company Number: 2018SE17043

PATIENT
  Age: 665 Month
  Sex: Female
  Weight: 80.7 kg

DRUGS (103)
  1. NEXIUM [Suspect]
     Active Substance: ESOMEPRAZOLE MAGNESIUM
     Indication: Gastrooesophageal reflux disease
     Route: 048
     Dates: start: 1999, end: 2017
  2. NEXIUM [Suspect]
     Active Substance: ESOMEPRAZOLE MAGNESIUM
     Indication: Gastrooesophageal reflux disease
     Route: 048
     Dates: start: 2008
  3. NEXIUM [Suspect]
     Active Substance: ESOMEPRAZOLE MAGNESIUM
     Indication: Gastrooesophageal reflux disease
     Route: 048
     Dates: start: 20080625
  4. NEXIUM [Suspect]
     Active Substance: ESOMEPRAZOLE MAGNESIUM
     Indication: Gastrooesophageal reflux disease
     Route: 048
     Dates: start: 20120807
  5. PRILOSEC [Suspect]
     Active Substance: OMEPRAZOLE MAGNESIUM
     Indication: Gastrooesophageal reflux disease
     Route: 048
     Dates: start: 1999, end: 2017
  6. PRILOSEC [Suspect]
     Active Substance: OMEPRAZOLE MAGNESIUM
     Indication: Gastrooesophageal reflux disease
     Route: 048
     Dates: start: 1999
  7. PRILOSEC [Suspect]
     Active Substance: OMEPRAZOLE MAGNESIUM
     Indication: Gastrooesophageal reflux disease
     Dosage: DR
     Route: 048
     Dates: start: 19990126
  8. PRILOSEC [Suspect]
     Active Substance: OMEPRAZOLE MAGNESIUM
     Indication: Gastrooesophageal reflux disease
     Route: 048
     Dates: start: 2010, end: 2017
  9. PRILOSEC [Suspect]
     Active Substance: OMEPRAZOLE MAGNESIUM
     Indication: Gastrooesophageal reflux disease
     Dosage: OMEPRAZOLE-GENERIC- 20MG DAILY
     Route: 065
     Dates: start: 2010, end: 2017
  10. PRILOSEC [Suspect]
     Active Substance: OMEPRAZOLE MAGNESIUM
     Indication: Gastrooesophageal reflux disease
     Dosage: OMEPRAZOLE DR 20
     Route: 048
     Dates: start: 20100313
  11. PRILOSEC [Suspect]
     Active Substance: OMEPRAZOLE MAGNESIUM
     Indication: Gastrooesophageal reflux disease
     Dosage: OMEPRAZOLE DR 20
     Route: 048
     Dates: start: 20150420
  12. PRILOSEC [Suspect]
     Active Substance: OMEPRAZOLE MAGNESIUM
     Indication: Gastrooesophageal reflux disease
     Dosage: GENERIC
     Dates: start: 1999, end: 2017
  13. DEXILANT [Suspect]
     Active Substance: DEXLANSOPRAZOLE
     Indication: Gastrooesophageal reflux disease
     Route: 065
     Dates: start: 1999, end: 2017
  14. DEXILANT [Suspect]
     Active Substance: DEXLANSOPRAZOLE
     Indication: Gastrooesophageal reflux disease
     Route: 065
     Dates: start: 2010, end: 2011
  15. DEXILANT [Suspect]
     Active Substance: DEXLANSOPRAZOLE
     Indication: Gastrooesophageal reflux disease
     Route: 048
     Dates: start: 20101022
  16. DEXILANT [Suspect]
     Active Substance: DEXLANSOPRAZOLE
     Indication: Gastrooesophageal reflux disease
     Dates: start: 20110105
  17. LANSOPRAZOLE [Suspect]
     Active Substance: LANSOPRAZOLE
     Dates: start: 1999, end: 2017
  18. LANSOPRAZOLE [Suspect]
     Active Substance: LANSOPRAZOLE
     Dates: start: 20200127, end: 20200810
  19. LISINOPRIL [Concomitant]
     Active Substance: LISINOPRIL
     Indication: Blood pressure abnormal
     Dates: start: 2007
  20. LISINOPRIL [Concomitant]
     Active Substance: LISINOPRIL
     Indication: Blood pressure abnormal
     Dates: start: 20100308
  21. LORAZEPAM [Concomitant]
     Active Substance: LORAZEPAM
     Indication: Anxiety
     Dates: start: 1993
  22. LORAZEPAM [Concomitant]
     Active Substance: LORAZEPAM
     Indication: Anxiety
     Route: 048
     Dates: start: 19990106
  23. LORAZEPAM [Concomitant]
     Active Substance: LORAZEPAM
     Indication: Anxiety
     Dates: start: 20110623
  24. IRON [Concomitant]
     Active Substance: IRON
     Indication: Anaemia
     Dates: start: 2014
  25. CRESTOR [Concomitant]
     Active Substance: ROSUVASTATIN CALCIUM
     Indication: Blood cholesterol abnormal
     Dates: start: 20080625
  26. CRESTOR [Concomitant]
     Active Substance: ROSUVASTATIN CALCIUM
     Indication: Blood cholesterol abnormal
     Dates: start: 2010
  27. CRESTOR [Concomitant]
     Active Substance: ROSUVASTATIN CALCIUM
     Indication: Blood cholesterol abnormal
     Dates: start: 20100315
  28. CRESTOR [Concomitant]
     Active Substance: ROSUVASTATIN CALCIUM
     Indication: Blood cholesterol abnormal
     Dosage: ROSUVASTATIN CALCI 30
     Dates: start: 20160511
  29. CRESTOR [Concomitant]
     Active Substance: ROSUVASTATIN CALCIUM
     Indication: Blood cholesterol abnormal
     Dates: start: 20100112
  30. ZYRTEC [Concomitant]
     Active Substance: CETIRIZINE HYDROCHLORIDE
     Indication: Multiple allergies
     Dates: start: 2012
  31. MELOXICAM [Concomitant]
     Active Substance: MELOXICAM
     Indication: Arthritis
     Dates: start: 2016
  32. MELOXICAM [Concomitant]
     Active Substance: MELOXICAM
     Indication: Arthritis
     Dates: start: 20091016
  33. MELOXICAM [Concomitant]
     Active Substance: MELOXICAM
     Indication: Arthritis
     Dates: start: 20100121
  34. ACETAMINOPHEN [Concomitant]
     Active Substance: ACETAMINOPHEN
     Indication: Pain
     Dosage: VRIOUS DATES
  35. ACETAMINOPHEN [Concomitant]
     Active Substance: ACETAMINOPHEN
     Indication: Pain
     Dates: start: 20140103
  36. ZANTAC [Concomitant]
     Active Substance: RANITIDINE HYDROCHLORIDE
     Dosage: 300 (PRESCRIPTION)
     Dates: start: 201806
  37. TUMS [Concomitant]
     Active Substance: CALCIUM CARBONATE
  38. PEPTO-BISMOL [Concomitant]
     Active Substance: BISMUTH SUBSALICYLATE
  39. ZOLOFT [Concomitant]
     Active Substance: SERTRALINE HYDROCHLORIDE
     Indication: Depression
     Dates: start: 1999
  40. ZOLOFT [Concomitant]
     Active Substance: SERTRALINE HYDROCHLORIDE
     Indication: Depression
     Dates: start: 19990408
  41. CELEBREX [Concomitant]
     Active Substance: CELECOXIB
     Indication: Pain
     Dates: start: 1999
  42. CELEBREX [Concomitant]
     Active Substance: CELECOXIB
     Indication: Pain
     Dates: start: 19990612
  43. HYDROCODONE [Concomitant]
     Active Substance: HYDROCODONE
     Indication: Pain
     Dates: start: 2000, end: 2001
  44. PHENERGAN [Concomitant]
     Active Substance: PROMETHAZINE HYDROCHLORIDE
     Indication: Antiallergic therapy
     Dates: start: 2000
  45. PHENERGAN [Concomitant]
     Active Substance: PROMETHAZINE HYDROCHLORIDE
     Indication: Antiallergic therapy
     Dates: start: 20000314
  46. SKELAXIN [Concomitant]
     Active Substance: METAXALONE
     Indication: Muscle relaxant therapy
     Dates: start: 2000
  47. SKELAXIN [Concomitant]
     Active Substance: METAXALONE
     Indication: Muscle relaxant therapy
     Dates: start: 20000425
  48. NAPROXEN [Concomitant]
     Active Substance: NAPROXEN
     Indication: Pain
     Dates: start: 2000
  49. NAPROXEN [Concomitant]
     Active Substance: NAPROXEN
     Indication: Pain
     Dates: start: 20000425
  50. AMOXICILLIN [Concomitant]
     Active Substance: AMOXICILLIN
     Indication: Infection
     Dates: start: 2000
  51. AMOXICILLIN [Concomitant]
     Active Substance: AMOXICILLIN
     Indication: Infection
     Dates: start: 20001025
  52. AMOXICILLIN [Concomitant]
     Active Substance: AMOXICILLIN
     Indication: Infection
     Dates: start: 20140103
  53. HYDRO-TUSSIN [Concomitant]
     Indication: Cough
     Dates: start: 2001
  54. HYDRO-TUSSIN [Concomitant]
     Indication: Cough
     Dosage: HYDRO-TUSSIN HD
     Dates: start: 20010702
  55. CLARITIN-D NOS [Concomitant]
     Active Substance: LORATADINE\PSEUDOEPHEDRINE SULFATE
     Indication: Multiple allergies
     Dates: start: 2001
  56. CLARITIN-D NOS [Concomitant]
     Active Substance: LORATADINE\PSEUDOEPHEDRINE SULFATE
     Indication: Multiple allergies
     Dosage: 24HR
     Dates: start: 20010822
  57. CEFTIN [Concomitant]
     Active Substance: CEFUROXIME AXETIL
     Dates: start: 20000314
  58. FLONASE [Concomitant]
     Active Substance: FLUTICASONE PROPIONATE
     Dosage: FLUTICASONE
     Dates: start: 20100420
  59. FLONASE [Concomitant]
     Active Substance: FLUTICASONE PROPIONATE
     Dates: start: 20150420
  60. HYDROCHLOROTHIAZIDE [Concomitant]
     Active Substance: HYDROCHLOROTHIAZIDE
     Dates: start: 20150420
  61. FLEXERIL [Concomitant]
     Active Substance: CYCLOBENZAPRINE HYDROCHLORIDE
     Dates: start: 20150921
  62. DICLOFENAC [Concomitant]
     Active Substance: DICLOFENAC
     Dosage: VOLTAREN
     Dates: start: 20130604
  63. DICLOFENAC [Concomitant]
     Active Substance: DICLOFENAC
     Dates: start: 20150921
  64. METRONIDAZOLE [Concomitant]
     Active Substance: METRONIDAZOLE
     Dates: start: 20010720
  65. ALLEGRA [Concomitant]
     Active Substance: FEXOFENADINE HYDROCHLORIDE
     Dates: start: 20030405
  66. SULFAMETHOXAZOLE\TRIMETHOPRIM [Concomitant]
     Active Substance: SULFAMETHOXAZOLE\TRIMETHOPRIM
     Dates: start: 20030509
  67. IBUPROFEN [Concomitant]
     Active Substance: IBUPROFEN
     Dates: start: 20010102
  68. KETOCONAZOLE [Concomitant]
     Active Substance: KETOCONAZOLE
     Dates: start: 20040517
  69. KETEK [Concomitant]
     Active Substance: TELITHROMYCIN
     Dosage: PAX 400MG
     Dates: start: 20050207
  70. FLUCONAZOLE [Concomitant]
     Active Substance: FLUCONAZOLE
     Dates: start: 20100930
  71. FLUCONAZOLE [Concomitant]
     Active Substance: FLUCONAZOLE
     Dates: start: 20150217
  72. TERCONAZOLE [Concomitant]
     Active Substance: TERCONAZOLE
     Dates: start: 20050427
  73. FUROSEMIDE [Concomitant]
     Active Substance: FUROSEMIDE
     Dates: start: 20090922
  74. HYDROCHLOROTHIAZIDE\LISINOPRIL [Concomitant]
     Active Substance: HYDROCHLOROTHIAZIDE\LISINOPRIL
     Dosage: 10-30
     Dates: start: 20100308
  75. DILTIAZEM [Concomitant]
     Active Substance: DILTIAZEM
     Dosage: 24HR
     Dates: start: 20100308
  76. LEXAPRO [Concomitant]
     Active Substance: ESCITALOPRAM OXALATE
     Dates: start: 20100524
  77. DIAZEPAM [Concomitant]
     Active Substance: DIAZEPAM
     Dates: start: 20100923
  78. TIZANIDINE [Concomitant]
     Active Substance: TIZANIDINE
     Dates: start: 20101208
  79. BUSPIRONE HCL [Concomitant]
     Active Substance: BUSPIRONE HYDROCHLORIDE
     Dates: start: 20110119
  80. BUSPIRONE HCL [Concomitant]
     Active Substance: BUSPIRONE HYDROCHLORIDE
     Dates: start: 20110129
  81. TRAMADOL HCL [Concomitant]
     Active Substance: TRAMADOL HYDROCHLORIDE
     Dates: start: 20120501
  82. PAROXETINE HYDROCHLORIDE [Concomitant]
     Active Substance: PAROXETINE HYDROCHLORIDE
     Dates: start: 20121003
  83. ACETAMINOPHEN\CODEINE PHOSPHATE [Concomitant]
     Active Substance: ACETAMINOPHEN\CODEINE PHOSPHATE
     Dates: start: 20140103
  84. TAMIFLU [Concomitant]
     Active Substance: OSELTAMIVIR PHOSPHATE
     Dates: start: 20140127
  85. BENZONATATE [Concomitant]
     Active Substance: BENZONATATE
     Dates: start: 20140203
  86. VESICARE [Concomitant]
     Active Substance: SOLIFENACIN SUCCINATE
     Dates: start: 20150615
  87. PREDNISONE [Concomitant]
     Active Substance: PREDNISONE
     Dates: start: 20151209
  88. CEFPROZIL [Concomitant]
     Active Substance: CEFPROZIL
     Dates: start: 20160510
  89. NEOMYCIN-POLYMYXIN [Concomitant]
     Dates: start: 20161109
  90. MECLIZINE [Concomitant]
     Active Substance: MECLIZINE HYDROCHLORIDE
     Dates: start: 20161109
  91. MONTELUKAST SODIUM [Concomitant]
     Active Substance: MONTELUKAST SODIUM
     Dates: start: 20170105
  92. PERCOCET [Concomitant]
     Active Substance: ACETAMINOPHEN\OXYCODONE HYDROCHLORIDE
  93. FERROUS SULFATE [Concomitant]
     Active Substance: FERROUS SULFATE
     Dates: start: 20160510
  94. CLARITHROMYCIN [Concomitant]
     Active Substance: CLARITHROMYCIN
  95. TERACONAZOLE [Concomitant]
  96. IRBESARTAN [Concomitant]
     Active Substance: IRBESARTAN
  97. PREMARIN [Concomitant]
     Active Substance: ESTROGENS, CONJUGATED
  98. ALUMINIUM HYDROXIDE-MAGNESIUM CARBONATE GEL/CALCIUM CARBONATE [Concomitant]
  99. FAMOTIDINE [Concomitant]
     Active Substance: FAMOTIDINE
     Dates: start: 20221031
  100. PREDNISOLONE [Concomitant]
     Active Substance: PREDNISOLONE
     Dates: start: 20190607
  101. WELLBUTRIN [Concomitant]
     Active Substance: BUPROPION HYDROCHLORIDE
  102. TIZANIDINE [Concomitant]
     Active Substance: TIZANIDINE
  103. CEFZIL [Concomitant]
     Active Substance: CEFPROZIL
     Dates: start: 20161109

REACTIONS (4)
  - Chronic kidney disease [Not Recovered/Not Resolved]
  - Nephrogenic anaemia [Unknown]
  - Acute kidney injury [Unknown]
  - Hyperparathyroidism secondary [Unknown]

NARRATIVE: CASE EVENT DATE: 20100301
